FAERS Safety Report 8467822-1 (Version None)
Quarter: 2012Q2

REPORT INFORMATION
  Report Type: 
  Country: None (occurrence: None)
  Receive Date: 20120626
  Receipt Date: 20120620
  Transmission Date: 20120825
  Serious: Yes (Hospitalization)
  Sender: FDA-Public Use
  Company Number: US-GLAXOSMITHKLINE-A0892633A

PATIENT
  Age: 70 Year
  Sex: Female

DRUGS (6)
  1. LOTENSIN HCT [Concomitant]
  2. AVANDIA [Suspect]
     Indication: DIABETES MELLITUS
     Dosage: 4MG PER DAY
     Route: 048
     Dates: start: 20060310, end: 20061011
  3. SOFTCLIX [Concomitant]
  4. PREMPRO [Concomitant]
  5. AVANDAMET [Suspect]
     Indication: DIABETES MELLITUS
     Route: 048
     Dates: start: 20040426, end: 20060310
  6. LIPITOR [Concomitant]

REACTIONS (1)
  - STENT PLACEMENT [None]
